FAERS Safety Report 10664554 (Version 2)
Quarter: 2014Q4

REPORT INFORMATION
  Report Type: Spontaneous
  Country: FR (occurrence: FR)
  Receive Date: 20141219
  Receipt Date: 20141231
  Transmission Date: 20150529
  Serious: Yes (Hospitalization, Other)
  Sender: FDA-Public Use
  Company Number: FR-ASTRAZENECA-2014SE96408

PATIENT
  Sex: Female

DRUGS (2)
  1. MARSILID [Suspect]
     Active Substance: IPRONIAZID
     Route: 065
  2. XEROQUEL [Suspect]
     Active Substance: QUETIAPINE FUMARATE
     Route: 048

REACTIONS (2)
  - Hepatitis [Recovering/Resolving]
  - Generalised oedema [Recovered/Resolved]
